FAERS Safety Report 20862994 (Version 1)
Quarter: 2022Q2

REPORT INFORMATION
  Report Type: Report from Study
  Country: MX (occurrence: MX)
  Receive Date: 20220523
  Receipt Date: 20220523
  Transmission Date: 20220721
  Serious: Yes (Other)
  Sender: FDA-Public Use
  Company Number: MX-NOVARTISPH-NVSC2022MX117573

PATIENT
  Age: 50 Year
  Sex: Female
  Weight: 105 kg

DRUGS (1)
  1. EXFORGE HCT [Suspect]
     Active Substance: AMLODIPINE BESYLATE\HYDROCHLOROTHIAZIDE\VALSARTAN
     Indication: Product used for unknown indication
     Dosage: 1 DOSAGE FORM (5/160/12.5MG), QD STARTED APPROXIMATELY 10 MONTHS AGO
     Route: 048

REACTIONS (11)
  - Facial paralysis [Not Recovered/Not Resolved]
  - Angina unstable [Not Recovered/Not Resolved]
  - Paralysis [Unknown]
  - Infarction [Unknown]
  - Hallucination [Unknown]
  - Pain [Unknown]
  - Anxiety [Recovering/Resolving]
  - Tremor [Unknown]
  - Tic [Not Recovered/Not Resolved]
  - Spinal pain [Unknown]
  - Insomnia [Recovered/Resolved]

NARRATIVE: CASE EVENT DATE: 20210801
